FAERS Safety Report 5488279-9 (Version None)
Quarter: 2007Q4

REPORT INFORMATION
  Report Type: 
  Country: None (occurrence: None)
  Receive Date: 20071005
  Receipt Date: 20070822
  Transmission Date: 20080405
  Serious: Yes (Life-Threatening, Other)
  Sender: FDA-Public Use
  Company Number: PHEH2007US07060

PATIENT
  Age: 75 Year
  Sex: Female
  Weight: 65.3 kg

DRUGS (7)
  1. TEKTURNA [Suspect]
     Indication: HYPERTENSION
     Dosage: 150 MG/DAY; 300 MG, QD
     Dates: end: 20070504
  2. TEKTURNA [Suspect]
     Indication: HYPERTENSION
     Dosage: 150 MG/DAY; 300 MG, QD
     Dates: start: 20070418
  3. DIOVAN HCT [Concomitant]
  4. INSULIN [Concomitant]
  5. TOPROL-XL [Concomitant]
  6. VYTORIN [Concomitant]
  7. DYNACIRC [Concomitant]

REACTIONS (2)
  - DRUG INEFFECTIVE [None]
  - HYPERTENSION [None]
